FAERS Safety Report 16109789 (Version 2)
Quarter: 2019Q2

REPORT INFORMATION
  Report Type: Spontaneous
  Country: US (occurrence: US)
  Receive Date: 20190325
  Receipt Date: 20190531
  Transmission Date: 20190711
  Serious: No
  Sender: FDA-Public Use
  Company Number: US-JNJFOC-20190305933

PATIENT
  Sex: Male

DRUGS (1)
  1. TYLENOL EXTRA STRENGTH [Suspect]
     Active Substance: ACETAMINOPHEN
     Indication: PAIN
     Dosage: 2 PILLS INFREQUENTLY
     Route: 048
     Dates: start: 20180707, end: 201903

REACTIONS (1)
  - Expired product administered [Unknown]
